FAERS Safety Report 7201234-3 (Version None)
Quarter: 2010Q4

REPORT INFORMATION
  Report Type: 
  Country: None (occurrence: None)
  Receive Date: 20101227
  Receipt Date: 20101227
  Transmission Date: 20110411
  Serious: Yes (Other)
  Sender: FDA-Public Use
  Company Number: None

PATIENT
  Sex: Female
  Weight: 51.7101 kg

DRUGS (2)
  1. ESTRADIOL [Suspect]
     Indication: HORMONE REPLACEMENT THERAPY
     Dosage: CONTINUOUS DELIVERY ONCE-WEEKLY TRANSDERMAL
     Route: 062
     Dates: start: 20101215, end: 20101224
  2. ESTRADIOL [Suspect]
     Indication: OSTEOPOROSIS
     Dosage: CONTINUOUS DELIVERY ONCE-WEEKLY TRANSDERMAL
     Route: 062
     Dates: start: 20101215, end: 20101224

REACTIONS (5)
  - APPLICATION SITE ERYTHEMA [None]
  - APPLICATION SITE PRURITUS [None]
  - PRODUCT ADHESION ISSUE [None]
  - PRODUCT SIZE ISSUE [None]
  - PRODUCT SUBSTITUTION ISSUE [None]
